FAERS Safety Report 7824615-3 (Version None)
Quarter: 2011Q4

REPORT INFORMATION
  Report Type: 
  Country: None (occurrence: None)
  Receive Date: 20111019
  Receipt Date: 20111006
  Transmission Date: 20120403
  Serious: Yes (Other)
  Sender: FDA-Public Use
  Company Number: DE-UCBSA-043420

PATIENT
  Age: 16 Year
  Sex: Male

DRUGS (1)
  1. METHYLPHENIDATE HCL [Suspect]
     Dosage: UPTO 30 CAPSULES OF 30 MG AT ONCE; ONE DOSE
     Route: 048
     Dates: start: 20111001, end: 20111001

REACTIONS (3)
  - EMOTIONAL DISORDER [None]
  - SUICIDE ATTEMPT [None]
  - INTENTIONAL OVERDOSE [None]
